FAERS Safety Report 9809766 (Version 3)
Quarter: 2014Q4

REPORT INFORMATION
  Report Type: Spontaneous
  Country: US (occurrence: US)
  Receive Date: 20140110
  Receipt Date: 20141114
  Transmission Date: 20150529
  Serious: Yes (Other)
  Sender: FDA-Public Use
  Company Number: US-SANOFI-AVENTIS-2012SA074015

PATIENT
  Age: 70 Year
  Sex: Female

DRUGS (4)
  1. ASPIRIN. [Suspect]
     Active Substance: ASPIRIN
     Route: 065
  2. WARFARIN [Concomitant]
     Active Substance: WARFARIN
  3. TYLENOL [Concomitant]
     Active Substance: ACETAMINOPHEN
  4. PLAVIX [Suspect]
     Active Substance: CLOPIDOGREL BISULFATE
     Indication: CORONARY ARTERIAL STENT INSERTION
     Route: 048
     Dates: start: 20040901, end: 20091028

REACTIONS (7)
  - Respiratory disorder [Unknown]
  - Chronic obstructive pulmonary disease [Unknown]
  - Mental status changes [Unknown]
  - Dysphagia [Unknown]
  - Coordination abnormal [Unknown]
  - Cerebral haemorrhage [Not Recovered/Not Resolved]
  - Gait disturbance [Unknown]

NARRATIVE: CASE EVENT DATE: 20091028
